FAERS Safety Report 11243086 (Version 1)
Quarter: 2015Q3

REPORT INFORMATION
  Report Type: Spontaneous
  Country: US (occurrence: None)
  Receive Date: 20150702
  Receipt Date: 20150702
  Transmission Date: 20151125
  Serious: Yes (Life-Threatening, Hospitalization, Disabling, Other)
  Sender: FDA-Public Use
  Company Number: None

PATIENT
  Age: 69 Year
  Sex: Male

DRUGS (3)
  1. RIBAVIRIN GILEAD SCIENCES [Suspect]
     Active Substance: RIBAVIRIN
  2. SOVALDI [Suspect]
     Active Substance: SOFOSBUVIR
     Indication: HEPATITIS C
  3. SOVALDI [Suspect]
     Active Substance: SOFOSBUVIR

REACTIONS (22)
  - Diabetic neuropathy [None]
  - Renal function test abnormal [None]
  - Liver function test abnormal [None]
  - Mantle cell lymphoma [None]
  - Contusion [None]
  - Muscle injury [None]
  - Faecal incontinence [None]
  - Splenomegaly [None]
  - Splenic neoplasm malignancy unspecified [None]
  - Oedema peripheral [None]
  - Abasia [None]
  - Abdominal mass [None]
  - Cardiac failure congestive [None]
  - Nerve injury [None]
  - Bedridden [None]
  - Vasculitis [None]
  - Urinary incontinence [None]
  - Non-Hodgkin^s lymphoma [None]
  - Gastrointestinal neoplasm [None]
  - Weight decreased [None]
  - Hepatic neoplasm [None]
  - Blood lactate dehydrogenase increased [None]

NARRATIVE: CASE EVENT DATE: 20150206
